FAERS Safety Report 6979174-4 (Version None)
Quarter: 2010Q3

REPORT INFORMATION
  Report Type: 
  Country: None (occurrence: None)
  Receive Date: 20100913
  Receipt Date: 20100903
  Transmission Date: 20110219
  Serious: Yes (Hospitalization)
  Sender: FDA-Public Use
  Company Number: FR-ABBOTT-10P-056-0668333-00

PATIENT
  Age: 63 Year
  Sex: Female

DRUGS (4)
  1. LIPANTHYL TABLETS [Suspect]
     Indication: HYPERTRIGLYCERIDAEMIA
     Route: 065
  2. LIPANTHYL TABLETS [Suspect]
     Route: 048
     Dates: end: 20100331
  3. PREVISCAN [Suspect]
     Indication: PRODUCT USED FOR UNKNOWN INDICATION
     Route: 048
     Dates: start: 20070101
  4. PREVISCAN [Suspect]
     Route: 048
     Dates: end: 20100321

REACTIONS (4)
  - ANAEMIA [None]
  - ANTICOAGULANT THERAPY [None]
  - HAEMATOMA [None]
  - HYPOPROTHROMBINAEMIA [None]
